FAERS Safety Report 20940162 (Version 1)
Quarter: 2022Q2

REPORT INFORMATION
  Report Type: Spontaneous
  Country: JP (occurrence: JP)
  Receive Date: 20220609
  Receipt Date: 20220609
  Transmission Date: 20220721
  Serious: Yes (Death, Other)
  Sender: FDA-Public Use
  Company Number: JP-JAZZ-2022-JP-018955

PATIENT
  Age: 46 Year
  Sex: Female
  Weight: 46.2 kg

DRUGS (3)
  1. DEFITELIO [Suspect]
     Active Substance: DEFIBROTIDE SODIUM
     Indication: Venoocclusive liver disease
     Dosage: 12.5 MG/KG (6.25MG/KG EVERY 6 HOURS.)
     Route: 042
     Dates: start: 20220219, end: 20220220
  2. NOREPINEPHRINE [Concomitant]
     Active Substance: NOREPINEPHRINE
     Dosage: UNK
  3. NAFAMOSTAT [NAFAMOSTAT MESILATE] [Concomitant]
     Dosage: UNK
     Dates: start: 20220218, end: 20220221

REACTIONS (3)
  - Septic shock [Fatal]
  - Hypotension [Fatal]
  - Septic cardiomyopathy [Unknown]

NARRATIVE: CASE EVENT DATE: 20220221
